FAERS Safety Report 7081570-4 (Version None)
Quarter: 2010Q4

REPORT INFORMATION
  Report Type: 
  Country: None (occurrence: None)
  Receive Date: 20101025
  Receipt Date: 20101018
  Transmission Date: 20110411
  Serious: Yes (Other)
  Sender: FDA-Public Use
  Company Number: 20109174

PATIENT
  Age: 9 Year
  Sex: Male

DRUGS (3)
  1. GABALON INTRATHECAL (BACLOFEN INJECTION) [Suspect]
     Indication: MUSCLE SPASTICITY
     Dosage: DAILY, INTRATHECAL
     Route: 037
  2. CERCINE POWDER [Concomitant]
  3. PHENOBAL [Concomitant]

REACTIONS (4)
  - GLOSSOPTOSIS [None]
  - HYPOTONIA [None]
  - OBSTRUCTIVE AIRWAYS DISORDER [None]
  - OVERDOSE [None]
